FAERS Safety Report 5975841-X (Version None)
Quarter: 2008Q4

REPORT INFORMATION
  Report Type: 
  Country: None (occurrence: None)
  Receive Date: 20081202
  Receipt Date: 20081126
  Transmission Date: 20090506
  Serious: Yes (Other)
  Sender: FDA-Public Use
  Company Number: A0746779A

PATIENT
  Age: 57 Year
  Sex: Female
  Weight: 50.3 kg

DRUGS (14)
  1. LAMICTAL [Suspect]
     Indication: DEPRESSION
     Dosage: 100MG PER DAY
     Route: 048
     Dates: start: 20080615, end: 20080830
  2. ADVAIR HFA [Suspect]
     Indication: ASTHMA
     Dosage: 1PUFF TWICE PER DAY
     Route: 055
     Dates: start: 20080812
  3. NEXIUM [Suspect]
     Dates: start: 20080829, end: 20080903
  4. NEURONTIN [Concomitant]
  5. PAROXETINE HCL [Concomitant]
  6. DIAZEPAM [Concomitant]
  7. CALCIUM + VITAMIN D [Concomitant]
  8. VITAMIN B COMPLEX CAP [Concomitant]
  9. ALBUTEROL [Concomitant]
  10. FLONASE [Concomitant]
  11. SYNTHROID [Concomitant]
  12. ACTONEL [Concomitant]
  13. PRINIVIL [Concomitant]
  14. ESTROVEN [Concomitant]

REACTIONS (32)
  - ABDOMINAL PAIN [None]
  - ANOREXIA [None]
  - ASTHMA [None]
  - CANDIDIASIS [None]
  - COUGH [None]
  - DECREASED APPETITE [None]
  - DIARRHOEA [None]
  - DRUG INEFFECTIVE [None]
  - FATIGUE [None]
  - FEELING HOT [None]
  - FLATULENCE [None]
  - GASTROOESOPHAGEAL REFLUX DISEASE [None]
  - GLOSSODYNIA [None]
  - HEADACHE [None]
  - HYPERHIDROSIS [None]
  - INFLUENZA [None]
  - LARYNGEAL ERYTHEMA [None]
  - LARYNGITIS [None]
  - MALAISE [None]
  - MOUTH ULCERATION [None]
  - NASAL CONGESTION [None]
  - ORAL DISORDER [None]
  - OROPHARYNGEAL PAIN [None]
  - PYREXIA [None]
  - SINUS HEADACHE [None]
  - SINUSITIS [None]
  - SPUTUM DISCOLOURED [None]
  - THROAT LESION [None]
  - VIRAL INFECTION [None]
  - VIRAL PHARYNGITIS [None]
  - VOMITING [None]
  - WEIGHT DECREASED [None]
